FAERS Safety Report 5441370-5 (Version None)
Quarter: 2007Q3

REPORT INFORMATION
  Report Type: 
  Country: None (occurrence: None)
  Receive Date: 20070903
  Receipt Date: 20070830
  Transmission Date: 20080115
  Serious: Yes (Death)
  Sender: FDA-Public Use
  Company Number: PHBS2007BR14335

PATIENT
  Age: 86 Year
  Sex: Male

DRUGS (1)
  1. EXELON [Suspect]
     Indication: MULTIPLE SCLEROSIS
     Dosage: 6 MG, BID
     Route: 048

REACTIONS (2)
  - MULTI-ORGAN FAILURE [None]
  - OESOPHAGEAL NEOPLASM [None]
